FAERS Safety Report 14608450 (Version 1)
Quarter: 2018Q1

REPORT INFORMATION
  Report Type: Spontaneous
  Country: DE (occurrence: DE)
  Receive Date: 20180307
  Receipt Date: 20180307
  Transmission Date: 20180509
  Serious: Yes (Hospitalization, Other)
  Sender: FDA-Public Use
  Company Number: DE-IMPAX LABORATORIES, INC-2017-IPXL-01234

PATIENT
  Age: 51 Year
  Sex: Female

DRUGS (1)
  1. BUPROPION HYDROCHLORIDE SR [Suspect]
     Active Substance: BUPROPION HYDROCHLORIDE
     Indication: SUICIDE ATTEMPT
     Dosage: 27 G, UNK
     Route: 048

REACTIONS (16)
  - Suicide attempt [Unknown]
  - Agitation [Recovered/Resolved]
  - Mydriasis [Recovered/Resolved]
  - Myoclonic epilepsy [Recovered/Resolved]
  - Coma [Recovered/Resolved]
  - Tonic convulsion [Recovered/Resolved]
  - Intentional overdose [Unknown]
  - Blood lactic acid increased [Unknown]
  - Electroencephalogram abnormal [Recovering/Resolving]
  - Hypotension [Recovered/Resolved]
  - Amnesia [Unknown]
  - Generalised tonic-clonic seizure [Recovered/Resolved]
  - Pyrexia [Unknown]
  - Ileus paralytic [Unknown]
  - Disorientation [Unknown]
  - Electrocardiogram QT prolonged [Unknown]
